FAERS Safety Report 9384456 (Version 1)
Quarter: 2013Q3

REPORT INFORMATION
  Report Type: Spontaneous
  Country: SE (occurrence: SE)
  Receive Date: 20130705
  Receipt Date: 20130705
  Transmission Date: 20140515
  Serious: Yes (Other)
  Sender: FDA-Public Use
  Company Number: SE-009507513-1307SWE001462

PATIENT
  Age: 58 Year
  Sex: Male

DRUGS (4)
  1. SIMVASTATIN [Suspect]
     Dosage: 20 MG, QD
     Route: 048
     Dates: start: 20121015, end: 20121110
  2. AMLODIPINE [Concomitant]
  3. CANDESARTAN [Concomitant]
  4. TROMBYL [Concomitant]

REACTIONS (1)
  - Oedema peripheral [Recovered/Resolved]
